FAERS Safety Report 5140590-7 (Version None)
Quarter: 2006Q4

REPORT INFORMATION
  Report Type: 
  Country: None (occurrence: None)
  Receive Date: 20061024
  Receipt Date: 20061011
  Transmission Date: 20070319
  Serious: Yes (Hospitalization)
  Sender: FDA-Public Use
  Company Number: FI200610002057

PATIENT
  Age: 46 Year
  Sex: Male

DRUGS (1)
  1. CIALIS [Suspect]
     Indication: ERECTILE DYSFUNCTION
     Dosage: 10 MG AS NEEDED ORAL
     Route: 048
     Dates: start: 20060701

REACTIONS (1)
  - SUBARACHNOID HAEMORRHAGE [None]
